FAERS Safety Report 7964298-5 (Version None)
Quarter: 2011Q4

REPORT INFORMATION
  Report Type: 
  Country: None (occurrence: None)
  Receive Date: 20111208
  Receipt Date: 20111201
  Transmission Date: 20120403
  Serious: Yes (Other)
  Sender: FDA-Public Use
  Company Number: AU-ASTELLAS-2011EU007635

PATIENT
  Sex: Female

DRUGS (4)
  1. ATACAND HCT [Concomitant]
     Dosage: UNK
     Route: 065
  2. CALCIUM CITRATE W/VITAMIN D NOS [Concomitant]
     Dosage: UNK
     Route: 065
  3. CANDESARTAN CILEXETIL [Concomitant]
     Dosage: UNK
     Route: 065
  4. VESICARE [Suspect]
     Indication: HYPERTONIC BLADDER
     Dosage: 5 MG, UID/QD
     Route: 048
     Dates: start: 20110607, end: 20110623

REACTIONS (8)
  - DRY MOUTH [None]
  - BACK PAIN [None]
  - CONSTIPATION [None]
  - HYPOTENSION [None]
  - DEPRESSED LEVEL OF CONSCIOUSNESS [None]
  - CONFUSIONAL STATE [None]
  - HEADACHE [None]
  - FATIGUE [None]
